FAERS Safety Report 19394107 (Version 1)
Quarter: 2021Q2

REPORT INFORMATION
  Report Type: Spontaneous
  Country: GB (occurrence: GB)
  Receive Date: 20210609
  Receipt Date: 20210609
  Transmission Date: 20210717
  Serious: Yes (Other)
  Sender: FDA-Public Use
  Company Number: GB-SUN PHARMACEUTICAL INDUSTRIES LTD-2021RR-297968

PATIENT
  Age: 19 Year
  Sex: Male
  Weight: 63.5 kg

DRUGS (2)
  1. CLARITHROMYCIN. [Suspect]
     Active Substance: CLARITHROMYCIN
     Dosage: UNK
     Route: 065
  2. CLARITHROMYCIN. [Suspect]
     Active Substance: CLARITHROMYCIN
     Indication: TONSILLITIS
     Dosage: 1000MG/DAY
     Route: 048
     Dates: start: 20210510

REACTIONS (6)
  - Disorientation [Not Recovered/Not Resolved]
  - Psychiatric symptom [Unknown]
  - Dysstasia [Unknown]
  - Depression [Not Recovered/Not Resolved]
  - Feeling abnormal [Unknown]
  - Gait disturbance [Unknown]

NARRATIVE: CASE EVENT DATE: 20210510
